FAERS Safety Report 7655768-8 (Version None)
Quarter: 2011Q3

REPORT INFORMATION
  Report Type: 
  Country: None (occurrence: None)
  Receive Date: 20110728
  Receipt Date: 20110721
  Transmission Date: 20111222
  Serious: Yes (Death)
  Sender: FDA-Public Use
  Company Number: 2011SP034285

PATIENT
  Age: 42 Year
  Sex: Female

DRUGS (2)
  1. INTEGRILIN [Suspect]
     Indication: PRODUCT USED FOR UNKNOWN INDICATION
     Dates: start: 20090101
  2. PLAVIX [Concomitant]

REACTIONS (1)
  - THROMBOSIS [None]
